FAERS Safety Report 18917655 (Version 8)
Quarter: 2023Q4

REPORT INFORMATION
  Report Type: Report from Study
  Country: US (occurrence: US)
  Receive Date: 20210219
  Receipt Date: 20231026
  Transmission Date: 20240110
  Serious: Yes (Hospitalization, Other)
  Sender: FDA-Public Use
  Company Number: US-SHIRE-US202012301

PATIENT
  Age: 49 Year
  Sex: Female

DRUGS (3)
  1. HUMAN IMMUNOGLOBULIN G [Suspect]
     Active Substance: HUMAN IMMUNOGLOBULIN G
     Indication: Primary immunodeficiency syndrome
     Dosage: 30 GRAM
     Route: 042
  2. HUMAN IMMUNOGLOBULIN G [Suspect]
     Active Substance: HUMAN IMMUNOGLOBULIN G
     Indication: Selective IgG subclass deficiency
  3. IRON [Concomitant]
     Active Substance: IRON
     Dosage: UNK
     Route: 042

REACTIONS (41)
  - Cellulitis [Unknown]
  - Lipoedema [Unknown]
  - Weight decreased [Unknown]
  - Iatrogenic infection [Unknown]
  - Impaired gastric emptying [Not Recovered/Not Resolved]
  - Fungal infection [Unknown]
  - Candida sepsis [Unknown]
  - Sepsis [Unknown]
  - Lipoma [Unknown]
  - Iron deficiency anaemia [Not Recovered/Not Resolved]
  - Thyroid mass [Unknown]
  - Ingrowing nail [Unknown]
  - Tendon rupture [Unknown]
  - Road traffic accident [Unknown]
  - Swollen tongue [Unknown]
  - Lip swelling [Unknown]
  - Oral discomfort [Unknown]
  - Tongue discomfort [Unknown]
  - Medical device site burn [Unknown]
  - Upper limb fracture [Unknown]
  - Limb injury [Unknown]
  - Malabsorption [Not Recovered/Not Resolved]
  - Tooth loss [Unknown]
  - Lymphoedema [Unknown]
  - Oral herpes [Unknown]
  - Thirst [Unknown]
  - Red blood cell abnormality [Unknown]
  - Capillary disorder [Unknown]
  - Infection [Unknown]
  - Animal bite [Unknown]
  - Upper respiratory tract infection [Unknown]
  - Poor venous access [Unknown]
  - Fall [Unknown]
  - Rib fracture [Unknown]
  - Nausea [Unknown]
  - Amnesia [Unknown]
  - Pyrexia [Unknown]
  - Dyspnoea [Unknown]
  - Fatigue [Unknown]
  - Pain [Unknown]
  - Pain in extremity [Unknown]

NARRATIVE: CASE EVENT DATE: 20200402
